FAERS Safety Report 5265106-6 (Version None)
Quarter: 2007Q1

REPORT INFORMATION
  Report Type: 
  Country: None (occurrence: None)
  Receive Date: 20061122
  Receipt Date: 20061002
  Transmission Date: 20070707
  Serious: Yes (Other)
  Sender: FDA-Public Use
  Company Number: US-JNJFOC-20061000829

PATIENT
  Age: 45 Year
  Sex: Male
  Weight: 99.7913 kg

DRUGS (5)
  1. RISPERDAL CONSTA [Suspect]
     Indication: SCHIZOPHRENIA
     Dosage: 25 MG, 1 IN 2 WEEK; INTRAMUSCULAE, 37.5, 1 IN 2 WEEK; INTRAMUSCULAR, 50 MG, 1 IN 2 WEEK; INTRAMUSCUL
     Route: 030
     Dates: start: 20060501, end: 20060701
  2. RISPERDAL CONSTA [Suspect]
     Indication: SCHIZOPHRENIA
     Dosage: 25 MG, 1 IN 2 WEEK; INTRAMUSCULAE, 37.5, 1 IN 2 WEEK; INTRAMUSCULAR, 50 MG, 1 IN 2 WEEK; INTRAMUSCUL
     Route: 030
     Dates: start: 20060701, end: 20060801
  3. RISPERDAL CONSTA [Suspect]
     Indication: SCHIZOPHRENIA
     Dosage: 25 MG, 1 IN 2 WEEK; INTRAMUSCULAE, 37.5, 1 IN 2 WEEK; INTRAMUSCULAR, 50 MG, 1 IN 2 WEEK; INTRAMUSCUL
     Route: 030
     Dates: start: 20060801, end: 20060901
  4. PROLIXIN [Concomitant]
  5. DEPAKOTE [Concomitant]

REACTIONS (3)
  - HYPONATRAEMIA [None]
  - THERAPEUTIC RESPONSE DECREASED [None]
  - WEIGHT DECREASED [None]
